FAERS Safety Report 9012160 (Version 2)
Quarter: 2013Q1

REPORT INFORMATION
  Report Type: Spontaneous
  Country: US (occurrence: None)
  Receive Date: 20121227
  Receipt Date: 20130116
  Transmission Date: 20140127
  Serious: Yes (Life-Threatening, Hospitalization, Other)
  Sender: FDA-Public Use
  Company Number: UTC-026924

PATIENT
  Age: 25 Year
  Sex: Female
  Weight: 60.45 kg

DRUGS (2)
  1. TYVASO (6 MICROGRAM, AEROSOL FOR INHALATION) (TREPROSTINIL SODIUM) [Suspect]
     Indication: COR PULMONALE CHRONIC
     Route: 055
     Dates: start: 20121121, end: 201212
  2. REVATIO [Concomitant]

REACTIONS (3)
  - Oxygen saturation decreased [None]
  - Dyspnoea [None]
  - General physical health deterioration [None]
